FAERS Safety Report 17841153 (Version 2)
Quarter: 2020Q2

REPORT INFORMATION
  Report Type: Report from Study
  Country: CA (occurrence: CA)
  Receive Date: 20200529
  Receipt Date: 20200601
  Transmission Date: 20200714
  Serious: Yes (Hospitalization)
  Sender: FDA-Public Use
  Company Number: CA-JNJFOC-20200524898

PATIENT
  Age: 63 Year
  Sex: Male
  Weight: 112 kg

DRUGS (2)
  1. STELARA [Suspect]
     Active Substance: USTEKINUMAB
     Indication: CROHN^S DISEASE
     Route: 058
     Dates: start: 20170720
  2. STELARA [Suspect]
     Active Substance: USTEKINUMAB

REACTIONS (3)
  - Taste disorder [Unknown]
  - Pyrexia [Unknown]
  - Weight decreased [Unknown]

NARRATIVE: CASE EVENT DATE: 202005
